FAERS Safety Report 6250111-3 (Version None)
Quarter: 2009Q2

REPORT INFORMATION
  Report Type: 
  Country: None (occurrence: None)
  Receive Date: 20090626
  Receipt Date: 20090612
  Transmission Date: 20091009
  Serious: Yes (Hospitalization)
  Sender: FDA-Public Use
  Company Number: DSU-2009-01218

PATIENT
  Age: 63 Year
  Sex: Female
  Weight: 149.687 kg

DRUGS (1)
  1. AZOR [Suspect]
     Indication: HYPERTENSION
     Dosage: 10/40MG (QD), PER ORAL
     Route: 048
     Dates: start: 20090501

REACTIONS (2)
  - CARDIAC FAILURE CONGESTIVE [None]
  - WEIGHT DECREASED [None]
